FAERS Safety Report 8198939-7 (Version None)
Quarter: 2012Q1

REPORT INFORMATION
  Report Type: 
  Country: None (occurrence: None)
  Receive Date: 20120309
  Receipt Date: 20120228
  Transmission Date: 20120608
  Serious: Yes (Hospitalization, Other)
  Sender: FDA-Public Use
  Company Number: US-JNJFOC-20120113480

PATIENT
  Sex: Female
  Weight: 64.86 kg

DRUGS (6)
  1. INFLIXIMAB, RECOMBINANT [Suspect]
     Indication: CROHN'S DISEASE
     Route: 042
     Dates: start: 20110928
  2. ANTIHISTAMINE [Concomitant]
     Indication: PREMEDICATION
  3. ACETAMINOPHEN [Concomitant]
     Indication: PREMEDICATION
  4. INFLIXIMAB, RECOMBINANT [Suspect]
     Route: 042
     Dates: start: 20111128
  5. INFLIXIMAB, RECOMBINANT [Suspect]
     Dosage: 3 INFUSIONS ON UNSPECIFIED DATES PRIOR TO/AT BASELINE
     Route: 042
  6. INFLIXIMAB, RECOMBINANT [Suspect]
     Dosage: 13 INFUSIONS
     Route: 042
     Dates: start: 20080822, end: 20110803

REACTIONS (2)
  - GASTROINTESTINAL HAEMORRHAGE [None]
  - ANAEMIA [None]
